FAERS Safety Report 23090693 (Version 1)
Quarter: 2023Q4

REPORT INFORMATION
  Report Type: Spontaneous
  Country: US (occurrence: US)
  Receive Date: 20231020
  Receipt Date: 20231020
  Transmission Date: 20240110
  Serious: Yes (Death, Other)
  Sender: FDA-Public Use
  Company Number: US-SUN PHARMACEUTICAL INDUSTRIES LTD-2023R1-413595

PATIENT

DRUGS (11)
  1. DOXORUBICIN [Suspect]
     Active Substance: DOXORUBICIN
     Indication: Breast cancer
     Dosage: UNK
     Route: 065
     Dates: start: 20180928, end: 20181026
  2. ANASTROZOLE [Concomitant]
     Active Substance: ANASTROZOLE
     Indication: Breast cancer
     Dosage: UNK
     Route: 065
     Dates: start: 20180219, end: 20180416
  3. FULVESTRANT [Concomitant]
     Active Substance: FULVESTRANT
     Indication: Breast cancer
     Dosage: UNK
     Route: 065
     Dates: start: 20180423, end: 20180707
  4. DOXORUBICIN HYDROCHLORIDE [Concomitant]
     Active Substance: DOXORUBICIN HYDROCHLORIDE
     Indication: Breast cancer
     Dosage: UNK
     Route: 065
     Dates: start: 20180928, end: 20181026
  5. PALBOCICLIB [Concomitant]
     Active Substance: PALBOCICLIB
     Indication: Breast cancer
     Dosage: 125 MILLIGRAM, DAILY
     Route: 065
     Dates: start: 20180219, end: 20180306
  6. PALBOCICLIB [Concomitant]
     Active Substance: PALBOCICLIB
     Dosage: 125 MILLIGRAM, DAILY
     Route: 065
     Dates: start: 20180315, end: 20180404
  7. PALBOCICLIB [Concomitant]
     Active Substance: PALBOCICLIB
     Dosage: UNK (75 MG, 14 DAYS OFF, 7 ON)
     Route: 065
     Dates: start: 20180502, end: 20180515
  8. PALBOCICLIB [Concomitant]
     Active Substance: PALBOCICLIB
     Dosage: UNK (100 MG, 14 DAYS OFF, 7 ON)
     Route: 065
     Dates: start: 20180522, end: 20180604
  9. PALBOCICLIB [Concomitant]
     Active Substance: PALBOCICLIB
     Dosage: UNK (75 MG, 14 DAYS OFF, 7 ON)
     Route: 065
     Dates: start: 20180612, end: 20180625
  10. PALBOCICLIB [Concomitant]
     Active Substance: PALBOCICLIB
     Dosage: UNK (75 MG, 14 DAYS OFF, 7 ON)
     Route: 065
     Dates: start: 20180703, end: 20180716
  11. PALBOCICLIB [Concomitant]
     Active Substance: PALBOCICLIB
     Dosage: UNK (75 MG, 14 DAYS OFF, 7 ON)
     Route: 065
     Dates: start: 20180724, end: 20180816

REACTIONS (1)
  - Drug ineffective [Fatal]

NARRATIVE: CASE EVENT DATE: 20181121
